FAERS Safety Report 16225674 (Version 2)
Quarter: 2019Q2

REPORT INFORMATION
  Report Type: Spontaneous
  Country: PL (occurrence: PL)
  Receive Date: 20190422
  Receipt Date: 20190615
  Transmission Date: 20190711
  Serious: Yes (Other)
  Sender: FDA-Public Use
  Company Number: PHHY2019PL089086

PATIENT
  Age: 59 Year
  Sex: Female

DRUGS (6)
  1. DOCETAXEL. [Suspect]
     Active Substance: DOCETAXEL
     Indication: BREAST CANCER
     Dosage: 75 MG/M2, UNK
     Route: 065
  2. HERCEPTIN [Suspect]
     Active Substance: TRASTUZUMAB
     Indication: BREAST CANCER
     Dosage: UNK UNK, CYCLIC (13 CYCLES SO FAR)
     Route: 065
  3. DEXAVEN [Concomitant]
     Active Substance: DEXAMETHASONE
     Dosage: 1 DF, Q3W
     Route: 042
     Dates: start: 20180713, end: 20180713
  4. PERJETA [Suspect]
     Active Substance: PERTUZUMAB
     Indication: BREAST CANCER
     Dosage: UNK UNK, CYCLIC (13 CYCLES SO FAR)
     Route: 065
  5. DOCETAXEL. [Suspect]
     Active Substance: DOCETAXEL
     Dosage: 113 MG/M2, Q3W (6 CYCLES)
     Route: 042
     Dates: start: 20180713
  6. ZOLEDRONIC ACID. [Concomitant]
     Active Substance: ZOLEDRONIC ACID
     Indication: PRODUCT USED FOR UNKNOWN INDICATION
     Dosage: 4 MG, UNK
     Route: 042

REACTIONS (5)
  - Skin swelling [Unknown]
  - Pyrexia [Unknown]
  - Chills [Unknown]
  - Polyneuropathy [Recovering/Resolving]
  - Skin hypertrophy [Unknown]

NARRATIVE: CASE EVENT DATE: 201811
